FAERS Safety Report 10956527 (Version 1)
Quarter: 2015Q1

REPORT INFORMATION
  Report Type: Spontaneous
  Country: FR (occurrence: None)
  Receive Date: 20150324
  Receipt Date: 20150324
  Transmission Date: 20150721
  Serious: Yes (Other)
  Sender: FDA-Public Use
  Company Number: 2787392

PATIENT
  Age: 59 Year
  Sex: Female

DRUGS (6)
  1. CALCIUM LEVOFOLINATE [Suspect]
     Active Substance: LEVOLEUCOVORIN CALCIUM
     Indication: PRODUCT USED FOR UNKNOWN INDICATION
     Dosage: CYCLICAL
     Route: 041
     Dates: start: 20150127, end: 20150127
  2. SODIUM CHLORIDE. [Concomitant]
     Active Substance: SODIUM CHLORIDE
  3. OXALIPLATIN. [Suspect]
     Active Substance: OXALIPLATIN
     Indication: PRODUCT USED FOR UNKNOWN INDICATION
     Route: 041
     Dates: start: 20150127, end: 20150127
  4. ONDANSETRON [Concomitant]
     Active Substance: ONDANSETRON
  5. GLUCOSE [Concomitant]
     Active Substance: DEXTROSE
  6. METHYLPREDNISOLONE. [Concomitant]
     Active Substance: METHYLPREDNISOLONE

REACTIONS (9)
  - Nausea [None]
  - Vomiting [None]
  - Pruritus [None]
  - Flushing [None]
  - Urticaria [None]
  - Infusion related reaction [None]
  - Rash [None]
  - Dyspnoea [None]
  - Malaise [None]

NARRATIVE: CASE EVENT DATE: 20150127
